FAERS Safety Report 25357100 (Version 1)
Quarter: 2025Q2

REPORT INFORMATION
  Report Type: Spontaneous
  Country: US (occurrence: US)
  Receive Date: 20250526
  Receipt Date: 20250526
  Transmission Date: 20250717
  Serious: No
  Sender: ZYDUS PHARM
  Company Number: US-CADILA HEALTHCARE LIMITED-US-ZYDUS-123640

PATIENT

DRUGS (1)
  1. LOSARTAN POTASSIUM [Suspect]
     Active Substance: LOSARTAN POTASSIUM
     Indication: Product used for unknown indication
     Route: 065

REACTIONS (7)
  - Feeling abnormal [Unknown]
  - Arthralgia [Unknown]
  - Product taste abnormal [Unknown]
  - Product odour abnormal [Unknown]
  - Product coating issue [Unknown]
  - Hypoaesthesia [Unknown]
  - Headache [Unknown]

NARRATIVE: CASE EVENT DATE: 20250401
